FAERS Safety Report 6326342-0 (Version None)
Quarter: 2009Q3

REPORT INFORMATION
  Report Type: 
  Country: None (occurrence: None)
  Receive Date: 20090821
  Receipt Date: 20090810
  Transmission Date: 20100115
  Serious: No
  Sender: FDA-Public Use
  Company Number: 2009009458

PATIENT
  Sex: Female

DRUGS (3)
  1. FENTORA [Suspect]
     Indication: BACK PAIN
     Dosage: 400 MCG, BU
     Route: 002
  2. MS CONTIN ER (MORPHINE SULFATE) [Concomitant]
  3. NORCO [Concomitant]

REACTIONS (2)
  - DRUG PRESCRIBING ERROR [None]
  - INCORRECT DOSE ADMINISTERED [None]
